FAERS Safety Report 23504774 (Version 1)
Quarter: 2024Q1

REPORT INFORMATION
  Report Type: Spontaneous
  Country: US (occurrence: US)
  Receive Date: 20240209
  Receipt Date: 20240209
  Transmission Date: 20240410
  Serious: No
  Sender: FDA-Public Use
  Company Number: US-JNJFOC-20240166879

PATIENT
  Sex: Female

DRUGS (7)
  1. RYBREVANT [Suspect]
     Active Substance: AMIVANTAMAB-VMJW
     Indication: Non-small cell lung cancer
     Route: 058
     Dates: start: 202206
  2. RYBREVANT [Suspect]
     Active Substance: AMIVANTAMAB-VMJW
     Dosage: DOSE REDUCED TO 70 PERCENT
     Route: 058
     Dates: start: 202210, end: 202303
  3. RYBREVANT [Suspect]
     Active Substance: AMIVANTAMAB-VMJW
     Route: 058
     Dates: start: 202307
  4. RYBREVANT [Suspect]
     Active Substance: AMIVANTAMAB-VMJW
     Dosage: 700 MG AT A RATE OF 125 ML/HR
     Route: 058
     Dates: start: 2023
  5. PREDNISONE [Concomitant]
     Active Substance: PREDNISONE
     Indication: Pruritus
  6. BENADRYL [Concomitant]
     Active Substance: DIPHENHYDRAMINE HYDROCHLORIDE
     Indication: Product used for unknown indication
  7. HYDROXYZINE HYDROCHLORIDE [Concomitant]
     Active Substance: HYDROXYZINE HYDROCHLORIDE

REACTIONS (9)
  - Skin fissures [Unknown]
  - Fatigue [Unknown]
  - Pruritus [Unknown]
  - Infusion related reaction [Unknown]
  - Vomiting [Unknown]
  - Flushing [Unknown]
  - Feeling hot [Unknown]
  - Onychomycosis [Recovered/Resolved]
  - Drug intolerance [Unknown]

NARRATIVE: CASE EVENT DATE: 20230101
